FAERS Safety Report 11147082 (Version 1)
Quarter: 2015Q2

REPORT INFORMATION
  Report Type: Spontaneous
  Country: NZ (occurrence: NZ)
  Receive Date: 20150528
  Receipt Date: 20150528
  Transmission Date: 20150821
  Serious: Yes (Other)
  Sender: FDA-Public Use
  Company Number: NZ-LUNDBECK-DKLU1113089

PATIENT
  Age: 12 Month
  Sex: Male

DRUGS (2)
  1. ONFI [Concomitant]
     Active Substance: CLOBAZAM
     Indication: PRODUCT USED FOR UNKNOWN INDICATION
  2. VIGABATRIN (FOR ORAL SOLUTION) [Suspect]
     Active Substance: VIGABATRIN
     Indication: PRODUCT USED FOR UNKNOWN INDICATION
     Route: 065

REACTIONS (2)
  - Angioedema [Unknown]
  - Urticaria [Unknown]

NARRATIVE: CASE EVENT DATE: 201411
